FAERS Safety Report 5154424-8 (Version None)
Quarter: 2006Q4

REPORT INFORMATION
  Report Type: 
  Country: None (occurrence: None)
  Receive Date: 20061114
  Receipt Date: 20061101
  Transmission Date: 20070319
  Serious: Yes (Other)
  Sender: FDA-Public Use
  Company Number: 2006135011

PATIENT
  Age: 82 Year
  Sex: Male

DRUGS (2)
  1. HYDROCORTISONE ACETATE [Suspect]
     Indication: HYPOPITUITARISM
     Dosage: ORAL
     Route: 048
     Dates: start: 20060101
  2. LEVOTHYROXINE SODIUM [Concomitant]

REACTIONS (3)
  - BLOOD OSMOLARITY INCREASED [None]
  - HYPERNATRAEMIA [None]
  - POLYURIA [None]
